FAERS Safety Report 9476130 (Version 3)
Quarter: 2013Q4

REPORT INFORMATION
  Report Type: Report from Study
  Country: NZ (occurrence: NZ)
  Receive Date: 20130826
  Receipt Date: 20131011
  Transmission Date: 20140711
  Serious: Yes (Death, Other)
  Sender: FDA-Public Use
  Company Number: PHHY2013NZ092068

PATIENT
  Age: 47 Year
  Sex: Male

DRUGS (2)
  1. CLOZARIL [Suspect]
     Indication: SCHIZOPHRENIA
     Dosage: 525 MG, DAILY
     Route: 048
     Dates: start: 19961108
  2. SODIUM VALPROATE [Concomitant]
     Indication: MOOD SWINGS
     Dosage: 1000 MG, DAILY
     Route: 048
     Dates: start: 1996

REACTIONS (6)
  - Head injury [Fatal]
  - Syncope [Fatal]
  - Cardiac arrest [Fatal]
  - Lip neoplasm malignant stage unspecified [Unknown]
  - Psychotic disorder [Unknown]
  - Dizziness [Unknown]
